FAERS Safety Report 4731543-9 (Version None)
Quarter: 2005Q3

REPORT INFORMATION
  Report Type: 
  Country: None (occurrence: None)
  Receive Date: 20050721
  Receipt Date: 20050427
  Transmission Date: 20060218
  Serious: Yes (Hospitalization, Other)
  Sender: FDA-Public Use
  Company Number: 2005063317

PATIENT
  Age: 24 Year
  Sex: Female
  Weight: 90.7194 kg

DRUGS (6)
  1. RELPAX [Suspect]
     Indication: MIGRAINE
     Dosage: (40MG)
     Dates: start: 20050222, end: 20050222
  2. PAROXETINE HCL [Concomitant]
  3. TRAZODONE (TRAZODONE) [Concomitant]
  4. QUETIAPINE FUMARATE [Concomitant]
  5. SERETIDE MITE (FLUTICASONE PROPIONATE, SALMETEROL XINAFOATE) [Concomitant]
  6. ALBUTEROL SULFATE HFA [Concomitant]

REACTIONS (4)
  - ARTERIAL SPASM [None]
  - CHEST PAIN [None]
  - DIZZINESS [None]
  - DYSPNOEA [None]
